FAERS Safety Report 10951822 (Version 2)
Quarter: 2015Q2

REPORT INFORMATION
  Report Type: Report from Study
  Country: FR (occurrence: FR)
  Receive Date: 20150325
  Receipt Date: 20150605
  Transmission Date: 20150821
  Serious: Yes (Other)
  Sender: FDA-Public Use
  Company Number: FR-UCBSA-046977

PATIENT
  Age: 48 Year
  Sex: Female
  Weight: 73 kg

DRUGS (24)
  1. SODIUM OXYBATE [Suspect]
     Active Substance: SODIUM OXYBATE
     Dosage: 4.5 G, 2X/DAY (BID)
     Route: 048
     Dates: start: 20120724, end: 201207
  2. SODIUM OXYBATE [Suspect]
     Active Substance: SODIUM OXYBATE
     Dosage: UNK, 2X/DAY (BID); 6G FIRST DOSE 3G SECOND DOSE
     Dates: start: 20140605, end: 20140703
  3. SODIUM OXYBATE [Suspect]
     Active Substance: SODIUM OXYBATE
     Dosage: UNK, 2X/DAY (BID); FIRST DOSE 6G , SECOND DOSE 3G NIGHTLY
     Dates: start: 20140728, end: 20140827
  4. SODIUM OXYBATE [Suspect]
     Active Substance: SODIUM OXYBATE
     Dosage: 4.5 G, 2X/DAY (BID)
     Route: 048
     Dates: start: 20130729, end: 20130913
  5. CYMBALTA [Concomitant]
     Active Substance: DULOXETINE HYDROCHLORIDE
     Dosage: 60 MG
  6. SODIUM OXYBATE [Suspect]
     Active Substance: SODIUM OXYBATE
     Indication: NARCOLEPSY
     Dosage: 2.25 G, 2X/DAY (BID)
     Route: 048
     Dates: start: 20111024, end: 20111107
  7. SODIUM OXYBATE [Suspect]
     Active Substance: SODIUM OXYBATE
     Dosage: 4.5 G, 2X/DAY (BID)
     Route: 048
     Dates: start: 20120621, end: 20120624
  8. SODIUM OXYBATE [Suspect]
     Active Substance: SODIUM OXYBATE
     Dosage: 4.5 G, 2X/DAY (BID)
     Route: 048
     Dates: start: 20120802, end: 20120911
  9. SODIUM OXYBATE [Suspect]
     Active Substance: SODIUM OXYBATE
     Dosage: 4.5 G, 2X/DAY (BID)
     Route: 048
     Dates: start: 20130515, end: 2013
  10. SODIUM OXYBATE [Suspect]
     Active Substance: SODIUM OXYBATE
     Dosage: 2.5 G, 2X/DAY (BID)
     Route: 048
     Dates: start: 20120606, end: 20120609
  11. SODIUM OXYBATE [Suspect]
     Active Substance: SODIUM OXYBATE
     Dosage: 3 G, 2X/DAY (BID)
     Route: 048
     Dates: start: 20120610, end: 20120614
  12. SODIUM OXYBATE [Suspect]
     Active Substance: SODIUM OXYBATE
     Dosage: 3.75 G, 2X/DAY (BID)
     Route: 048
     Dates: start: 20120625, end: 20120723
  13. SODIUM OXYBATE [Suspect]
     Active Substance: SODIUM OXYBATE
     Dosage: 6G + 3G NIGHTLY, 2X/DAY (BID)
     Route: 048
     Dates: start: 20150228, end: 2015
  14. SODIUM OXYBATE [Suspect]
     Active Substance: SODIUM OXYBATE
     Dosage: 3.75 G, 2X/DAY (BID)
     Route: 048
     Dates: start: 20120615, end: 20120620
  15. SODIUM OXYBATE [Suspect]
     Active Substance: SODIUM OXYBATE
     Dosage: 3.75 G, 2X/DAY (BID)
     Route: 048
     Dates: start: 20120726, end: 20120801
  16. SODIUM OXYBATE [Suspect]
     Active Substance: SODIUM OXYBATE
     Dosage: 1ST DOSE: 3 G AND 2ND DOSE: 6 G, 2X/DAY (BID)
     Dates: start: 20130914, end: 20131129
  17. SODIUM OXYBATE [Suspect]
     Active Substance: SODIUM OXYBATE
     Dosage: UNK, 2X/DAY (BID), FIRST DOSE 6G SECOND DOSE 3G NIGHTLY
     Dates: start: 20131130, end: 20140130
  18. SODIUM OXYBATE [Suspect]
     Active Substance: SODIUM OXYBATE
     Dosage: 6G + 4G NIGHTLY, 2X/DAY (BID)
     Route: 048
     Dates: start: 20150129, end: 20150227
  19. SODIUM OXYBATE [Suspect]
     Active Substance: SODIUM OXYBATE
     Dosage: UNKNOWN DOSE
  20. SODIUM OXYBATE [Suspect]
     Active Substance: SODIUM OXYBATE
     Indication: CATAPLEXY
     Dosage: 3 G, 2X/DAY (BID)
     Route: 048
     Dates: start: 20111108, end: 2011
  21. SODIUM OXYBATE [Suspect]
     Active Substance: SODIUM OXYBATE
     Dosage: 4.5 G, 2X/DAY (BID)
     Route: 048
     Dates: start: 20111224, end: 20120604
  22. SODIUM OXYBATE [Suspect]
     Active Substance: SODIUM OXYBATE
     Dosage: 3 G, 2X/DAY (BID)
     Route: 048
     Dates: start: 20120912, end: 20130514
  23. SODIUM OXYBATE [Suspect]
     Active Substance: SODIUM OXYBATE
     Dosage: 6G + 4G NIGHTLY, 2X/DAY (BID)
     Route: 048
     Dates: start: 20150401, end: 20150410
  24. EFFEXOR [Concomitant]
     Active Substance: VENLAFAXINE HYDROCHLORIDE
     Dosage: DOSE: 75 MF 4 TABLETS DAILY

REACTIONS (53)
  - Malaise [Recovered/Resolved]
  - Chills [Unknown]
  - Nervousness [Unknown]
  - Arthralgia [Not Recovered/Not Resolved]
  - Pain in extremity [Not Recovered/Not Resolved]
  - Vertigo [Unknown]
  - Joint stiffness [Unknown]
  - Oedema peripheral [Unknown]
  - Nightmare [Unknown]
  - Agitation [Not Recovered/Not Resolved]
  - Feeling abnormal [Not Recovered/Not Resolved]
  - Epicondylitis [Unknown]
  - Eye movement disorder [Unknown]
  - Abdominal pain upper [Unknown]
  - Sleep apnoea syndrome [Not Recovered/Not Resolved]
  - Fatigue [Not Recovered/Not Resolved]
  - Dizziness [Unknown]
  - Hallucination [Not Recovered/Not Resolved]
  - Dry mouth [Unknown]
  - Back pain [Not Recovered/Not Resolved]
  - Off label use [Unknown]
  - Sleep talking [Unknown]
  - Cataplexy [Not Recovered/Not Resolved]
  - Insomnia [Not Recovered/Not Resolved]
  - Ligament sprain [Unknown]
  - Pain [Not Recovered/Not Resolved]
  - Rheumatic disorder [Unknown]
  - Muscle spasms [Unknown]
  - Blood urine present [Unknown]
  - Overdose [Unknown]
  - Incontinence [Not Recovered/Not Resolved]
  - Respiratory disorder [Recovered/Resolved]
  - Bone pain [Unknown]
  - Depressive symptom [Unknown]
  - Amnesia [Unknown]
  - Fall [Not Recovered/Not Resolved]
  - Emotional disorder [Unknown]
  - Hypersomnia [Unknown]
  - Nausea [Unknown]
  - Asthenia [Unknown]
  - Restless legs syndrome [Not Recovered/Not Resolved]
  - Irritability [Recovered/Resolved]
  - Hypoaesthesia [Unknown]
  - Snoring [Unknown]
  - Ligament sprain [Unknown]
  - Headache [Not Recovered/Not Resolved]
  - Sleep disorder [Not Recovered/Not Resolved]
  - Somnolence [Not Recovered/Not Resolved]
  - Hypotonia [Unknown]
  - Vomiting [Unknown]
  - Feeling abnormal [Unknown]
  - Nasal congestion [Unknown]
  - Inappropriate schedule of drug administration [Recovered/Resolved]

NARRATIVE: CASE EVENT DATE: 20111024
